FAERS Safety Report 10414817 (Version 1)
Quarter: 2014Q3

REPORT INFORMATION
  Report Type: Spontaneous
  Country: US (occurrence: None)
  Receive Date: 20140827
  Receipt Date: 20140827
  Transmission Date: 20150326
  Serious: No
  Sender: FDA-Public Use
  Company Number: None

PATIENT

DRUGS (2)
  1. METOPROLOL [Suspect]
     Active Substance: METOPROLOL
  2. NEURONTIN [Suspect]
     Active Substance: GABAPENTIN

REACTIONS (3)
  - Unevaluable event [None]
  - Product quality issue [None]
  - Adverse event [None]
